FAERS Safety Report 6342426-5 (Version None)
Quarter: 2009Q3

REPORT INFORMATION
  Report Type: 
  Country: None (occurrence: None)
  Receive Date: 20090904
  Receipt Date: 20090904
  Transmission Date: 20100115
  Serious: No
  Sender: FDA-Public Use
  Company Number: None

PATIENT
  Age: 34 Year
  Sex: Female
  Weight: 61.2356 kg

DRUGS (1)
  1. ZICAM COLD REMEDY NASAL GEL ZICUM GLUCONICUM 2X ZICAM LLC, MATRIXX INI [Suspect]
     Indication: NASOPHARYNGITIS
     Dosage: ONE DOSE / SQUIRT ONCE INHAL
     Dates: start: 20090101, end: 20090101

REACTIONS (13)
  - ACNE [None]
  - AGEUSIA [None]
  - ANOSMIA [None]
  - ANXIETY [None]
  - BURNING SENSATION [None]
  - DECREASED APPETITE [None]
  - DEPRESSION [None]
  - EMOTIONAL DISORDER [None]
  - FEELING ABNORMAL [None]
  - IMPAIRED WORK ABILITY [None]
  - MENTAL DISORDER [None]
  - STRESS [None]
  - WEIGHT DECREASED [None]
